FAERS Safety Report 18594593 (Version 4)
Quarter: 2021Q1

REPORT INFORMATION
  Report Type: Report from Study
  Country: US (occurrence: US)
  Receive Date: 20201209
  Receipt Date: 20210318
  Transmission Date: 20210419
  Serious: No
  Sender: FDA-Public Use
  Company Number: NVSC2020US323364

PATIENT
  Age: 71 Year
  Sex: Female

DRUGS (4)
  1. COSENTYX [Suspect]
     Active Substance: SECUKINUMAB
     Indication: PSORIATIC ARTHROPATHY
     Dosage: 300 MG, QW FOR 5 WEEKS
     Route: 058
  2. PREDNISONE. [Suspect]
     Active Substance: PREDNISONE
     Indication: PRODUCT USED FOR UNKNOWN INDICATION
     Dosage: UNK
     Route: 065
  3. COSENTYX [Suspect]
     Active Substance: SECUKINUMAB
     Route: 058
  4. COSENTYX [Suspect]
     Active Substance: SECUKINUMAB
     Dosage: 300 MG, Q4W
     Route: 058

REACTIONS (7)
  - Psoriasis [Unknown]
  - Musculoskeletal stiffness [Recovering/Resolving]
  - Inappropriate schedule of product administration [Unknown]
  - Swelling face [Not Recovered/Not Resolved]
  - Skin swelling [Not Recovered/Not Resolved]
  - Peripheral swelling [Recovering/Resolving]
  - Hyperaesthesia teeth [Unknown]

NARRATIVE: CASE EVENT DATE: 20201218
